FAERS Safety Report 4398294-4 (Version None)
Quarter: 2004Q3

REPORT INFORMATION
  Report Type: 
  Country: None (occurrence: None)
  Receive Date: 20040712
  Receipt Date: 20040625
  Transmission Date: 20050211
  Serious: Yes (Hospitalization)
  Sender: FDA-Public Use
  Company Number: 200330

PATIENT
  Age: 31 Year
  Sex: Female

DRUGS (4)
  1. AVONEX [Suspect]
     Indication: MULTIPLE SCLEROSIS
     Dosage: 30 MCG QW IM
     Route: 030
     Dates: start: 20000101
  2. SPASFON [Concomitant]
  3. VISCERALGINE [Concomitant]
  4. TRINORDIOL [Concomitant]

REACTIONS (5)
  - AMENORRHOEA [None]
  - METRORRHAGIA [None]
  - MULTIPLE SCLEROSIS RELAPSE [None]
  - OVARIAN CYST [None]
  - RAYNAUD'S PHENOMENON [None]
